FAERS Safety Report 19610999 (Version 2)
Quarter: 2021Q4

REPORT INFORMATION
  Report Type: Spontaneous
  Country: US (occurrence: None)
  Receive Date: 20210726
  Receipt Date: 20211209
  Transmission Date: 20220303
  Serious: Yes (Death, Hospitalization, Other)
  Sender: FDA-Public Use
  Company Number: 2021A639638

PATIENT
  Age: 28552 Day
  Sex: Male

DRUGS (51)
  1. PRILOSEC [Suspect]
     Active Substance: OMEPRAZOLE MAGNESIUM
     Indication: Gastrooesophageal reflux disease
     Route: 048
     Dates: start: 2009, end: 2019
  2. PRILOSEC [Suspect]
     Active Substance: OMEPRAZOLE MAGNESIUM
     Indication: Gastrooesophageal reflux disease
     Route: 048
     Dates: start: 2009, end: 2019
  3. PRILOSEC [Suspect]
     Active Substance: OMEPRAZOLE MAGNESIUM
     Indication: Gastrooesophageal reflux disease
     Dosage: GENERIC
     Route: 065
     Dates: start: 2009, end: 2019
  4. PROTONIX [Suspect]
     Active Substance: PANTOPRAZOLE SODIUM
     Indication: Gastrooesophageal reflux disease
     Route: 065
     Dates: start: 2009, end: 2019
  5. PROTONIX [Suspect]
     Active Substance: PANTOPRAZOLE SODIUM
     Indication: Gastrooesophageal reflux disease
     Route: 065
     Dates: start: 2009, end: 2019
  6. PROTONIX [Suspect]
     Active Substance: PANTOPRAZOLE SODIUM
     Indication: Gastrooesophageal reflux disease
     Dosage: GENERIC
     Route: 065
     Dates: start: 2018
  7. HYDRALAZINE [Concomitant]
     Active Substance: HYDRALAZINE HYDROCHLORIDE
     Indication: Blood pressure abnormal
     Route: 065
     Dates: start: 2015
  8. GENTAMICIN [Concomitant]
     Active Substance: GENTAMICIN
     Route: 065
     Dates: start: 2015
  9. BENADRYL [Concomitant]
     Active Substance: DIPHENHYDRAMINE HYDROCHLORIDE
     Indication: Pruritus
     Route: 065
     Dates: start: 2015
  10. AXID AR [Concomitant]
     Active Substance: NIZATIDINE
  11. PEPCID [Concomitant]
     Active Substance: FAMOTIDINE
  12. TEGAMET HB [Concomitant]
  13. ZANTAC [Concomitant]
     Active Substance: RANITIDINE HYDROCHLORIDE
  14. TUMS [Concomitant]
     Active Substance: CALCIUM CARBONATE
     Route: 065
     Dates: start: 1990, end: 2019
  15. ALKA-SELTZER [Concomitant]
     Active Substance: ANHYDROUS CITRIC ACID\ASPIRIN\SODIUM BICARBONATE
     Route: 065
     Dates: start: 1990, end: 2019
  16. PEPTO-BISMOL [Concomitant]
     Active Substance: BISMUTH SUBSALICYLATE
     Route: 065
     Dates: start: 1990, end: 2019
  17. MAALOX/MYLANTA [Concomitant]
     Route: 065
     Dates: start: 1990, end: 2019
  18. ROLAIDS [Concomitant]
     Active Substance: CALCIUM CARBONATE\MAGNESIUM HYDROXIDE
     Route: 065
     Dates: start: 1990, end: 2019
  19. ASPIRIN [Concomitant]
     Active Substance: ASPIRIN
  20. MIDODRINE [Concomitant]
     Active Substance: MIDODRINE
  21. PREDNISONE [Concomitant]
     Active Substance: PREDNISONE
  22. SIMVASTATIN [Concomitant]
     Active Substance: SIMVASTATIN
  23. SEVELAMER [Concomitant]
     Active Substance: SEVELAMER
  24. METOPROLOL TARTRATE [Concomitant]
     Active Substance: METOPROLOL TARTRATE
  25. NOVOLOG [Concomitant]
     Active Substance: INSULIN ASPART
  26. SENOKOT [Concomitant]
     Active Substance: SENNOSIDES
  27. DOCUSATE SODIUM [Concomitant]
     Active Substance: DOCUSATE SODIUM
  28. VANCOMYCIN [Concomitant]
     Active Substance: VANCOMYCIN
  29. RENVELA [Concomitant]
     Active Substance: SEVELAMER CARBONATE
  30. ACETAMINOPHEN\HYDROCODONE [Concomitant]
     Active Substance: ACETAMINOPHEN\HYDROCODONE
  31. AURYXIA [Concomitant]
     Active Substance: TETRAFERRIC TRICITRATE DECAHYDRATE
  32. CIPROFLOXACIN [Concomitant]
     Active Substance: CIPROFLOXACIN
  33. LIDOCAINE [Concomitant]
     Active Substance: LIDOCAINE
  34. FLUTICASONE [Concomitant]
     Active Substance: FLUTICASONE
  35. LANTUS [Concomitant]
     Active Substance: INSULIN GLARGINE
  36. LEVOFLOXACIN [Concomitant]
     Active Substance: LEVOFLOXACIN
  37. AMOX-CLV [Concomitant]
  38. PRILOCAINE [Concomitant]
     Active Substance: PRILOCAINE
  39. CALCIUM ACETATE [Concomitant]
     Active Substance: CALCIUM ACETATE
  40. AMLODIPINE [Concomitant]
     Active Substance: AMLODIPINE BESYLATE
  41. ATORVASTATIN [Concomitant]
     Active Substance: ATORVASTATIN
  42. JANUVIA [Concomitant]
     Active Substance: SITAGLIPTIN PHOSPHATE
  43. ZINC SULFATE [Concomitant]
     Active Substance: ZINC SULFATE
  44. AZITHROMYCIN [Concomitant]
     Active Substance: AZITHROMYCIN
  45. CARVEDILOL [Concomitant]
     Active Substance: CARVEDILOL
  46. TRIAMCINOLONE [Concomitant]
     Active Substance: TRIAMCINOLONE
  47. CYCLOBENZAPRINE [Concomitant]
     Active Substance: CYCLOBENZAPRINE
  48. TAMSULOSIN [Concomitant]
     Active Substance: TAMSULOSIN
  49. LEVOCETIRIZINE [Concomitant]
     Active Substance: LEVOCETIRIZINE
  50. CEPHALEXIN [Concomitant]
     Active Substance: CEPHALEXIN
  51. LISINOPRIL [Concomitant]
     Active Substance: LISINOPRIL

REACTIONS (5)
  - Death [Fatal]
  - Acute kidney injury [Unknown]
  - Chronic kidney disease [Unknown]
  - End stage renal disease [Unknown]
  - Renal failure [Unknown]

NARRATIVE: CASE EVENT DATE: 20150904
